FAERS Safety Report 9789893 (Version 1)
Quarter: 2013Q4

REPORT INFORMATION
  Report Type: Spontaneous
  Country: US (occurrence: None)
  Receive Date: 20131227
  Receipt Date: 20131227
  Transmission Date: 20140711
  Serious: Yes (Other)
  Sender: FDA-Public Use
  Company Number: ADR-2013-02329

PATIENT
  Sex: Male

DRUGS (1)
  1. BACLOFEN INTRATHECAL [Suspect]
     Indication: MULTIPLE SCLEROSIS

REACTIONS (7)
  - Pain [None]
  - Muscle spasticity [None]
  - Pruritus [None]
  - Confusional state [None]
  - Hallucination [None]
  - Spinal column stenosis [None]
  - Condition aggravated [None]
